FAERS Safety Report 5952613-3 (Version None)
Quarter: 2008Q4

REPORT INFORMATION
  Report Type: 
  Country: None (occurrence: None)
  Receive Date: 20081031
  Receipt Date: 20080107
  Transmission Date: 20090506
  Serious: Yes (Other)
  Sender: FDA-Public Use
  Company Number: US-WYE-H02057108

PATIENT
  Sex: Male

DRUGS (1)
  1. PREMARIN [Suspect]
     Indication: URINARY TRACT INFECTION
     Dosage: 0.5 G 2X PER 1 WK, VAGINAL
     Route: 067
     Dates: start: 20070105

REACTIONS (3)
  - ABASIA [None]
  - ACCIDENTAL EXPOSURE [None]
  - SCROTAL PAIN [None]
